FAERS Safety Report 17075608 (Version 2)
Quarter: 2020Q1

REPORT INFORMATION
  Report Type: Spontaneous
  Country: US (occurrence: US)
  Receive Date: 20191126
  Receipt Date: 20200103
  Transmission Date: 20200409
  Serious: No
  Sender: FDA-Public Use
  Company Number: US-PFIZER INC-2019507068

PATIENT
  Age: 66 Year
  Sex: Female
  Weight: 61.22 kg

DRUGS (12)
  1. ESTRADIOL. [Suspect]
     Active Substance: ESTRADIOL
     Indication: BONE DISORDER
     Dosage: 0.6 MG, 1X/DAY
     Route: 048
  2. CALCIUM + VITAMIN D [CALCIUM;COLECALCIFEROL] [Concomitant]
     Indication: BONE DISORDER
     Dosage: UNK
  3. FUROSEMIDE. [Concomitant]
     Active Substance: FUROSEMIDE
     Dosage: UNK
     Dates: start: 2015
  4. ESTRADIOL. [Suspect]
     Active Substance: ESTRADIOL
     Dosage: 0.5 MG, 1X/DAY
     Dates: start: 201904, end: 201910
  5. CELLCEPT [Concomitant]
     Active Substance: MYCOPHENOLATE MOFETIL\MYCOPHENOLATE MOFETIL HYDROCHLORIDE
     Dosage: UNK
     Dates: start: 201911
  6. OSTEO BI-FLEX [CHONDROITIN SULFATE;GLUCOSAMINE HYDROCHLORIDE] [Concomitant]
     Indication: BONE DISORDER
     Dosage: UNK
  7. CARDIZEM [Concomitant]
     Active Substance: DILTIAZEM HYDROCHLORIDE
     Dosage: UNK
     Dates: start: 2014
  8. PREDNISONE. [Concomitant]
     Active Substance: PREDNISONE
     Dosage: UNK
     Dates: start: 201911
  9. FOLIC ACID. [Concomitant]
     Active Substance: FOLIC ACID
     Dosage: UNK
     Dates: start: 2018
  10. POTASSIUM [Concomitant]
     Active Substance: POTASSIUM
     Dosage: UNK
     Dates: start: 2014
  11. CELEBREX [Concomitant]
     Active Substance: CELECOXIB
     Dosage: UNK
     Dates: start: 2014
  12. PLAQUENIL [HYDROXYCHLOROQUINE PHOSPHATE] [Concomitant]
     Active Substance: HYDROXYCHLOROQUINE DIPHOSPHATE
     Dosage: UNK
     Dates: start: 2014

REACTIONS (3)
  - Drug ineffective for unapproved indication [Unknown]
  - Product use issue [Unknown]
  - Off label use [Unknown]

NARRATIVE: CASE EVENT DATE: 201904
